FAERS Safety Report 4339018-6 (Version None)
Quarter: 2004Q2

REPORT INFORMATION
  Report Type: 
  Country: None (occurrence: None)
  Receive Date: 20040409
  Receipt Date: 20040326
  Transmission Date: 20050107
  Serious: Yes (Hospitalization)
  Sender: FDA-Public Use
  Company Number: RENA-10956

PATIENT
  Age: 65 Year
  Sex: Male

DRUGS (1)
  1. RENAGEL [Suspect]
     Indication: HYPERPHOSPHATAEMIA
     Dosage: 0.75 G TID PO
     Route: 048
     Dates: start: 20030718, end: 20040126

REACTIONS (2)
  - CONSTIPATION [None]
  - DIVERTICULITIS [None]
